FAERS Safety Report 25834878 (Version 2)
Quarter: 2025Q4

REPORT INFORMATION
  Report Type: Report from Study
  Country: EU (occurrence: EU)
  Receive Date: 20250923
  Receipt Date: 20251027
  Transmission Date: 20260117
  Serious: Yes (Hospitalization, Other)
  Sender: ABBVIE
  Company Number: EU-ABBVIE-6469502

PATIENT
  Age: 77 Year
  Sex: Male
  Weight: 80 kg

DRUGS (3)
  1. HUMIRA [Suspect]
     Active Substance: ADALIMUMAB
     Indication: Psoriasis
     Route: 058
     Dates: start: 20180419, end: 20250220
  2. Egiramlon [Concomitant]
     Indication: Product used for unknown indication
  3. Torvacard Neo [Concomitant]
     Indication: Product used for unknown indication

REACTIONS (7)
  - Arthritis bacterial [Not Recovered/Not Resolved]
  - Internal fixation of fracture [Not Recovered/Not Resolved]
  - Forearm fracture [Unknown]
  - Pain in extremity [Unknown]
  - Skeletal injury [Unknown]
  - C-reactive protein increased [Unknown]
  - Upper limb fracture [Unknown]

NARRATIVE: CASE EVENT DATE: 20220101
